FAERS Safety Report 14317739 (Version 2)
Quarter: 2018Q2

REPORT INFORMATION
  Report Type: Spontaneous
  Country: US (occurrence: US)
  Receive Date: 20171222
  Receipt Date: 20180509
  Transmission Date: 20180711
  Serious: No
  Sender: FDA-Public Use
  Company Number: US-PFIZER INC-2017541857

PATIENT
  Age: 66 Year
  Sex: Female

DRUGS (1)
  1. DOCETAXEL. [Suspect]
     Active Substance: DOCETAXEL
     Dosage: 153 MG, EVERY 3 WEEKS
     Dates: start: 20120309, end: 20120622

REACTIONS (1)
  - Alopecia [Not Recovered/Not Resolved]
